FAERS Safety Report 8987551 (Version 3)
Quarter: 2013Q1

REPORT INFORMATION
  Report Type: Report from Study
  Country: DE (occurrence: DE)
  Receive Date: 20121227
  Receipt Date: 20130108
  Transmission Date: 20140127
  Serious: Yes (Hospitalization)
  Sender: FDA-Public Use
  Company Number: PHHO2012DE018394

PATIENT
  Sex: Male
  Weight: 65 kg

DRUGS (5)
  1. LBH589 [Suspect]
     Indication: ACUTE MYELOID LEUKAEMIA
     Dosage: 30 MG, TIW
     Route: 048
     Dates: start: 20121205, end: 20121219
  2. LBH589 [Suspect]
     Dosage: 30 MG, TIW
     Route: 048
     Dates: start: 20130102
  3. CICLOSPORIN [Suspect]
     Indication: ACUTE MYELOID LEUKAEMIA
     Dosage: 30 MG, TIW
     Route: 048
     Dates: start: 20121205, end: 20121219
  4. CICLOSPORIN [Suspect]
     Dosage: 30 MG, TIW
     Route: 048
     Dates: start: 20130102
  5. PREDNISOLONE SANDOZ [Suspect]

REACTIONS (1)
  - Colitis [Recovered/Resolved]
